FAERS Safety Report 9633578 (Version 4)
Quarter: 2014Q2

REPORT INFORMATION
  Report Type: Report from Study
  Country: TH (occurrence: TH)
  Receive Date: 20131021
  Receipt Date: 20140619
  Transmission Date: 20141212
  Serious: Yes (Hospitalization)
  Sender: FDA-Public Use
  Company Number: PHHO2012TH004641

PATIENT
  Age: 36 Year
  Sex: Female
  Weight: 47 kg

DRUGS (3)
  1. SOM230 [Suspect]
     Indication: PITUITARY-DEPENDENT CUSHING^S SYNDROME
     Dosage: 900 UG, BID
     Route: 058
     Dates: start: 20120301, end: 20120320
  2. SOM230 [Suspect]
     Dosage: 600 UG, BID
     Route: 058
     Dates: start: 20120329, end: 20130731
  3. THYROXINE [Concomitant]
     Dosage: 100 UG (0.5 DF)
     Route: 048

REACTIONS (1)
  - Adrenal insufficiency [Recovering/Resolving]
